FAERS Safety Report 24177374 (Version 1)
Quarter: 2024Q3

REPORT INFORMATION
  Report Type: Spontaneous
  Country: US (occurrence: US)
  Receive Date: 20240806
  Receipt Date: 20240806
  Transmission Date: 20241017
  Serious: Yes (Death, Other)
  Sender: MALLINCKRODT
  Company Number: US-MALLINCKRODT-MNK202404780

PATIENT
  Sex: Male

DRUGS (1)
  1. CORTICOTROPIN [Suspect]
     Active Substance: CORTICOTROPIN
     Indication: Nephrotic syndrome
     Dosage: UNKNOWN

REACTIONS (2)
  - Death [Fatal]
  - Neoplasm malignant [Unknown]
